FAERS Safety Report 7002391-4 (Version None)
Quarter: 2010Q3

REPORT INFORMATION
  Report Type: 
  Country: None (occurrence: None)
  Receive Date: 20100920
  Receipt Date: 20090925
  Transmission Date: 20110219
  Serious: No
  Sender: FDA-Public Use
  Company Number: US-ASTRAZENECA-2009SE15834

PATIENT
  Sex: Female

DRUGS (1)
  1. SEROQUEL [Suspect]
     Route: 048

REACTIONS (4)
  - ABNORMAL WEIGHT GAIN [None]
  - DRUG DOSE OMISSION [None]
  - EATING DISORDER [None]
  - SLEEP DISORDER [None]
